FAERS Safety Report 9798761 (Version 1)
Quarter: 2014Q1

REPORT INFORMATION
  Report Type: Spontaneous
  Country: US (occurrence: US)
  Receive Date: 20140106
  Receipt Date: 20140106
  Transmission Date: 20141002
  Serious: No
  Sender: FDA-Public Use
  Company Number: US-GILEAD-2010-0030121

PATIENT
  Age: 51 Year
  Sex: Female

DRUGS (9)
  1. LETAIRIS [Suspect]
     Indication: PULMONARY ARTERIAL HYPERTENSION
     Route: 048
     Dates: start: 20100330, end: 20100607
  2. REVATIO [Concomitant]
  3. FUROSEMIDE [Concomitant]
  4. AVANDIA [Concomitant]
  5. JANUMET [Concomitant]
  6. IMIPRAMINE [Concomitant]
  7. MULTIVITAMIN [Concomitant]
  8. PRILOSEC [Concomitant]
  9. POTASSIUM [Concomitant]

REACTIONS (2)
  - Dyspnoea [Recovered/Resolved]
  - Local swelling [Recovering/Resolving]
